FAERS Safety Report 12451202 (Version 3)
Quarter: 2017Q1

REPORT INFORMATION
  Report Type: Report from Study
  Country: US (occurrence: US)
  Receive Date: 20160609
  Receipt Date: 20170314
  Transmission Date: 20170428
  Serious: Yes (Other)
  Sender: FDA-Public Use
  Company Number: US-UCBSA-2016010370

PATIENT
  Age: 28 Year
  Sex: Female
  Weight: 57 kg

DRUGS (1)
  1. CERTOLIZUMAB PEGOL [Suspect]
     Active Substance: CERTOLIZUMAB PEGOL
     Indication: CROHN^S DISEASE
     Dosage: 400 MG, EV 4 WEEKS
     Route: 058
     Dates: start: 20130301

REACTIONS (4)
  - Nasopharyngitis [Recovered/Resolved]
  - Pregnancy [Unknown]
  - Wrong technique in product usage process [Unknown]
  - Twin pregnancy [Not Recovered/Not Resolved]

NARRATIVE: CASE EVENT DATE: 201605
